FAERS Safety Report 5367476-7 (Version None)
Quarter: 2007Q2

REPORT INFORMATION
  Report Type: 
  Country: None (occurrence: None)
  Receive Date: 20070622
  Receipt Date: 20061031
  Transmission Date: 20071010
  Serious: No
  Sender: FDA-Public Use
  Company Number: US-ASTRAZENECA-2006UW21008

PATIENT

DRUGS (2)
  1. PULMICORT RESPULES [Suspect]
     Route: 055
  2. ALBUTEROL [Concomitant]

REACTIONS (4)
  - AGITATION [None]
  - COUGH [None]
  - FLUSHING [None]
  - NASAL CONGESTION [None]
